FAERS Safety Report 16469681 (Version 1)
Quarter: 2019Q2

REPORT INFORMATION
  Report Type: Spontaneous
  Country: US (occurrence: US)
  Receive Date: 20190624
  Receipt Date: 20190624
  Transmission Date: 20190711
  Serious: No
  Sender: FDA-Public Use
  Company Number: US-SA-2019SA167925

PATIENT
  Age: 76 Year
  Sex: Male

DRUGS (1)
  1. PRALUENT [Suspect]
     Active Substance: ALIROCUMAB
     Dosage: 2 DF, QOW
     Dates: start: 201905, end: 201906

REACTIONS (2)
  - Influenza like illness [Recovered/Resolved]
  - Arthralgia [Recovered/Resolved]
